FAERS Safety Report 5721211-9 (Version None)
Quarter: 2008Q2

REPORT INFORMATION
  Report Type: 
  Country: None (occurrence: None)
  Receive Date: 20080423
  Receipt Date: 20071108
  Transmission Date: 20081010
  Serious: Yes (Other)
  Sender: FDA-Public Use
  Company Number: 249096

PATIENT
  Age: 48 Year
  Sex: Female

DRUGS (9)
  1. AVASTIN [Suspect]
     Indication: NON-SMALL CELL LUNG CANCER METASTATIC
     Dosage: 15 MG/KG
     Dates: start: 20070112
  2. ANTICOAGULANT (ANTICOAGULANT NOS) [Concomitant]
  3. ARIXTRA [Concomitant]
  4. NAVELBINE [Concomitant]
  5. LOVENOX [Concomitant]
  6. CIPRO [Concomitant]
  7. ALOXI [Concomitant]
  8. DECADRON [Concomitant]
  9. OXYCODONE ER (OXYCODONE HYDROCHLORIDE) [Concomitant]

REACTIONS (1)
  - THROMBOSIS [None]
